FAERS Safety Report 12583920 (Version 1)
Quarter: 2016Q3

REPORT INFORMATION
  Report Type: Report from Study
  Country: US (occurrence: US)
  Receive Date: 20160722
  Receipt Date: 20160722
  Transmission Date: 20161109
  Serious: Yes (Hospitalization, Other)
  Sender: FDA-Public Use
  Company Number: US-BIOGEN-2012BI064919

PATIENT
  Age: 43 Year
  Sex: Female

DRUGS (6)
  1. AVONEX [Suspect]
     Active Substance: INTERFERON BETA-1A
     Route: 030
     Dates: end: 20130622
  2. AVONEX [Suspect]
     Active Substance: INTERFERON BETA-1A
     Route: 030
     Dates: start: 20130623
  3. JANUVIA [Concomitant]
     Active Substance: SITAGLIPTIN PHOSPHATE
     Indication: DIABETES MELLITUS
     Route: 048
     Dates: start: 2007
  4. AVONEX [Suspect]
     Active Substance: INTERFERON BETA-1A
     Indication: MULTIPLE SCLEROSIS
     Route: 030
     Dates: start: 19970701
  5. AVONEX [Suspect]
     Active Substance: INTERFERON BETA-1A
     Route: 030
     Dates: start: 20121207, end: 20130201
  6. GLUCOZIDE (NOS) [Concomitant]
     Indication: DIABETES MELLITUS
     Route: 048
     Dates: start: 1989

REACTIONS (13)
  - Gait disturbance [Not Recovered/Not Resolved]
  - Mobility decreased [Not Recovered/Not Resolved]
  - Anaesthetic complication [Recovered/Resolved]
  - Balance disorder [Not Recovered/Not Resolved]
  - Femur fracture [Recovered/Resolved]
  - Hemiparesis [Recovered/Resolved with Sequelae]
  - Hip fracture [Recovered/Resolved]
  - Memory impairment [Unknown]
  - Multiple sclerosis [Unknown]
  - Fall [Recovered/Resolved]
  - Muscular weakness [Not Recovered/Not Resolved]
  - Arthralgia [Not Recovered/Not Resolved]
  - Pain [Recovered/Resolved]

NARRATIVE: CASE EVENT DATE: 201212
